FAERS Safety Report 22387620 (Version 1)
Quarter: 2023Q2

REPORT INFORMATION
  Report Type: Report from Study
  Country: GB (occurrence: GB)
  Receive Date: 20230531
  Receipt Date: 20230531
  Transmission Date: 20230722
  Serious: Yes (Other)
  Sender: FDA-Public Use
  Company Number: GB-KOREA IPSEN Pharma-2022-14990

PATIENT
  Sex: Female

DRUGS (1)
  1. LANREOTIDE ACETATE [Suspect]
     Active Substance: LANREOTIDE ACETATE
     Indication: Neuroendocrine tumour
     Dosage: 120MG/0.5ML SOLUTION FOR INJECTION
     Route: 058

REACTIONS (6)
  - Myocardial infarction [Unknown]
  - Joint swelling [Unknown]
  - Cardiac disorder [Unknown]
  - Fatigue [Unknown]
  - Mood swings [Unknown]
  - Peripheral swelling [Unknown]
